FAERS Safety Report 12073956 (Version 1)
Quarter: 2016Q1

REPORT INFORMATION
  Report Type: Spontaneous
  Country: US (occurrence: US)
  Receive Date: 20160212
  Receipt Date: 20160212
  Transmission Date: 20160526
  Serious: No
  Sender: FDA-Public Use
  Company Number: US-009507513-1602USA005941

PATIENT
  Sex: Female

DRUGS (10)
  1. PLENDIL [Concomitant]
     Active Substance: FELODIPINE
  2. AMIODARONE [Concomitant]
     Active Substance: AMIODARONE
  3. JANUVIA [Suspect]
     Active Substance: SITAGLIPTIN PHOSPHATE
     Indication: DIABETES MELLITUS
     Dosage: 100 MG, QD
     Route: 048
     Dates: start: 2014
  4. TRICOR [Concomitant]
     Active Substance: FENOFIBRATE
  5. METOPROLOL. [Concomitant]
     Active Substance: METOPROLOL
  6. DIOVAN [Concomitant]
     Active Substance: VALSARTAN
  7. INSULIN [Concomitant]
     Active Substance: INSULIN NOS
  8. DIGOXIN. [Concomitant]
     Active Substance: DIGOXIN
  9. LEVEMIR [Concomitant]
     Active Substance: INSULIN DETEMIR
  10. GLUCOTROL XL [Concomitant]
     Active Substance: GLIPIZIDE

REACTIONS (5)
  - Drug dose omission [Unknown]
  - Abdominal pain upper [Unknown]
  - Feeling abnormal [Unknown]
  - Inappropriate schedule of drug administration [Unknown]
  - Malaise [Unknown]
